FAERS Safety Report 7456235-7 (Version None)
Quarter: 2011Q2

REPORT INFORMATION
  Report Type: 
  Country: None (occurrence: None)
  Receive Date: 20110503
  Receipt Date: 20110420
  Transmission Date: 20111010
  Serious: No
  Sender: FDA-Public Use
  Company Number: US-B.I. PHARMACEUTICALS,INC./RIDGEFIELD-2011-BP-11345BP

PATIENT
  Sex: Female

DRUGS (5)
  1. HYZAAR [Concomitant]
     Indication: HYPERTENSION
     Dosage: 12.5 MG
     Route: 048
  2. SIMVASTATIN [Concomitant]
     Indication: BLOOD CHOLESTEROL INCREASED
     Route: 048
  3. COSOPT [Concomitant]
     Indication: GLAUCOMA
     Route: 031
  4. PRADAXA [Suspect]
     Indication: ATRIAL FIBRILLATION
     Dosage: 300 MG
     Route: 048
     Dates: start: 20110320
  5. PREDNISONE [Concomitant]
     Indication: EYE DISORDER
     Dosage: 120 MG
     Route: 048
     Dates: start: 19980701

REACTIONS (1)
  - FATIGUE [None]
